FAERS Safety Report 4866276-1 (Version None)
Quarter: 2005Q4

REPORT INFORMATION
  Report Type: 
  Country: None (occurrence: None)
  Receive Date: 20051227
  Receipt Date: 20051220
  Transmission Date: 20060501
  Serious: Yes (Hospitalization)
  Sender: FDA-Public Use
  Company Number: US-SANOFI-SYNTHELABO-A03200504357

PATIENT
  Sex: Female
  Weight: 84.8 kg

DRUGS (9)
  1. PLAVIX [Suspect]
     Indication: TRANSIENT ISCHAEMIC ATTACK
     Route: 048
     Dates: start: 20030101
  2. NEXIUM [Concomitant]
     Route: 048
  3. LEVOTHROID [Concomitant]
     Route: 048
  4. LIPITOR [Concomitant]
     Route: 048
  5. SINGULAIR [Concomitant]
     Route: 048
  6. ADVAIR DISKUS 250/50 [Concomitant]
     Dosage: UNK
     Route: 048
  7. XOPENEX [Concomitant]
     Route: 065
  8. ALTACE [Concomitant]
     Route: 048
  9. ZYRTEC [Concomitant]
     Route: 048

REACTIONS (1)
  - PULMONARY EMBOLISM [None]
